FAERS Safety Report 5461096-1 (Version None)
Quarter: 2007Q3

REPORT INFORMATION
  Report Type: 
  Country: None (occurrence: None)
  Receive Date: 20070918
  Receipt Date: 20070918
  Transmission Date: 20080115
  Serious: Yes (Hospitalization)
  Sender: FDA-Public Use
  Company Number: None

PATIENT
  Sex: Female

DRUGS (8)
  1. CETUXIMAB [Suspect]
     Indication: PANCREATIC CARCINOMA
     Dosage: 580MG/1450MG IV
     Route: 042
     Dates: start: 20070522
  2. OXALIPLATIN [Suspect]
     Indication: PANCREATIC CARCINOMA
     Dosage: 145MG IV
     Route: 042
     Dates: start: 20070523
  3. PROTONIX [Concomitant]
  4. LORAZEPAM [Concomitant]
  5. FOLIC ACID [Concomitant]
  6. CALCIUM [Concomitant]
  7. DILAUDID [Concomitant]
  8. GEMCITABINE HCL [Suspect]

REACTIONS (2)
  - NAUSEA [None]
  - VOMITING [None]
